FAERS Safety Report 4425938-0 (Version None)
Quarter: 2004Q3

REPORT INFORMATION
  Report Type: 
  Country: None (occurrence: None)
  Receive Date: 20040719
  Receipt Date: 20030818
  Transmission Date: 20050211
  Serious: Yes (Hospitalization)
  Sender: FDA-Public Use
  Company Number: 177718

PATIENT
  Age: 62 Year
  Sex: Male
  Weight: 102.0593 kg

DRUGS (4)
  1. AVONEX [Suspect]
     Indication: MULTIPLE SCLEROSIS
     Dosage: 30 MCG QW IM
     Route: 030
     Dates: start: 20020101
  2. SYNTHROID [Concomitant]
  3. MEDICATIONS (NOS) [Concomitant]
  4. ZOCOR [Concomitant]

REACTIONS (6)
  - ASTHENIA [None]
  - INJECTION SITE HAEMORRHAGE [None]
  - LIMB INJURY [None]
  - PAIN [None]
  - PYREXIA [None]
  - URINARY TRACT INFECTION [None]
